FAERS Safety Report 8156593-4 (Version None)
Quarter: 2012Q1

REPORT INFORMATION
  Report Type: 
  Country: None (occurrence: None)
  Receive Date: 20120222
  Receipt Date: 20120210
  Transmission Date: 20120608
  Serious: Yes (Other)
  Sender: FDA-Public Use
  Company Number: CA-PFIZER INC-2012045216

PATIENT
  Age: 31 Year
  Sex: Female

DRUGS (2)
  1. CRIZOTINIB [Suspect]
     Dosage: UNK
  2. CRIZOTINIB [Suspect]
     Dosage: 250 MG, 1X/DAY
     Dates: start: 20120126, end: 20120202

REACTIONS (11)
  - ABDOMINAL DISCOMFORT [None]
  - ALANINE AMINOTRANSFERASE INCREASED [None]
  - GASTROINTESTINAL TOXICITY [None]
  - DIZZINESS [None]
  - IMPAIRED GASTRIC EMPTYING [None]
  - NAUSEA [None]
  - EARLY SATIETY [None]
  - NIGHT SWEATS [None]
  - VOMITING [None]
  - ORTHOSTATIC HYPOTENSION [None]
  - ASPARTATE AMINOTRANSFERASE INCREASED [None]
